FAERS Safety Report 5598549-1 (Version None)
Quarter: 2008Q1

REPORT INFORMATION
  Report Type: 
  Country: None (occurrence: None)
  Receive Date: 20080122
  Receipt Date: 20080118
  Transmission Date: 20080703
  Serious: Yes (Hospitalization)
  Sender: FDA-Public Use
  Company Number: FR-SANOFI-SYNTHELABO-F01200800091

PATIENT
  Sex: Male

DRUGS (3)
  1. LASIX [Concomitant]
     Dosage: UNK
  2. CAPECITABINE [Suspect]
     Dosage: FIRST 14 DAYS OF EACH COURSE
     Route: 048
     Dates: start: 20040401, end: 20040414
  3. OXALIPLATIN [Suspect]
     Indication: HEPATIC NEOPLASM MALIGNANT
     Dosage: DAY 1 OF EACH COURSE
     Route: 042
     Dates: start: 20040401, end: 20040401

REACTIONS (2)
  - ABDOMINAL PAIN UPPER [None]
  - URINARY RETENTION [None]
